FAERS Safety Report 5701043-8 (Version None)
Quarter: 2008Q2

REPORT INFORMATION
  Report Type: 
  Country: None (occurrence: None)
  Receive Date: 20080410
  Receipt Date: 20080328
  Transmission Date: 20081010
  Serious: Yes (Death, Hospitalization)
  Sender: FDA-Public Use
  Company Number: FR-WYE-H03493808

PATIENT
  Sex: Female

DRUGS (4)
  1. CORDARONE [Suspect]
     Indication: ATRIAL FIBRILLATION
     Dosage: 200 MG TABLET (DOSE AND REGIMEN UNKNOWN)
     Route: 048
  2. LEVOTHYROXINE SODIUM [Suspect]
     Indication: HYPOTHYROIDISM
     Dosage: UNKNOWN
     Route: 048
  3. FUROSEMIDE [Concomitant]
     Dosage: UNKNOWN
     Route: 048
  4. PREVISCAN [Suspect]
     Indication: ATRIAL FIBRILLATION
     Dosage: 20 MG TABLET (DOSE AND REGIMEN UNKNOWN)
     Route: 048
     Dates: start: 20050101

REACTIONS (1)
  - CEREBELLAR HAEMATOMA [None]
